FAERS Safety Report 25585954 (Version 1)
Quarter: 2025Q3

REPORT INFORMATION
  Report Type: Spontaneous
  Country: US (occurrence: None)
  Receive Date: 20250718
  Receipt Date: 20250718
  Transmission Date: 20251020
  Serious: Yes (Life-Threatening, Hospitalization, Disabling, Other)
  Sender: FDA-CTU
  Company Number: None

PATIENT
  Age: 86 Year
  Sex: Male
  Weight: 60.75 kg

DRUGS (3)
  1. IRON DEXTRAN [Suspect]
     Active Substance: IRON DEXTRAN
     Indication: Anaemia
     Dates: start: 20250609, end: 20250609
  2. DEVICE [Concomitant]
     Active Substance: DEVICE
  3. UNSPECIFIED INGREDIENT [Concomitant]
     Active Substance: UNSPECIFIED INGREDIENT

REACTIONS (5)
  - Anaphylactic reaction [None]
  - Cardiac arrest [None]
  - Respiratory arrest [None]
  - Iatrogenic injury [None]
  - Lung perforation [None]

NARRATIVE: CASE EVENT DATE: 20250609
